FAERS Safety Report 20820106 (Version 3)
Quarter: 2022Q2

REPORT INFORMATION
  Report Type: Report from Study
  Country: US (occurrence: US)
  Receive Date: 20220512
  Receipt Date: 20220621
  Transmission Date: 20220721
  Serious: Yes (Other)
  Sender: FDA-Public Use
  Company Number: US-NOVARTISPH-NVSC2022US104624

PATIENT
  Sex: Male

DRUGS (2)
  1. ENTRESTO [Suspect]
     Active Substance: SACUBITRIL\VALSARTAN
     Indication: Product used for unknown indication
     Dosage: UNK
     Route: 065
  2. ENTRESTO [Suspect]
     Active Substance: SACUBITRIL\VALSARTAN
     Indication: Cardiac failure chronic

REACTIONS (7)
  - Diabetes mellitus [Unknown]
  - Ejection fraction decreased [Unknown]
  - Arteriosclerosis [Unknown]
  - Musculoskeletal stiffness [Unknown]
  - Weight fluctuation [Unknown]
  - Blood pressure systolic increased [Unknown]
  - Fatigue [Unknown]
